FAERS Safety Report 4494173-2 (Version None)
Quarter: 2004Q4

REPORT INFORMATION
  Report Type: 
  Country: None (occurrence: None)
  Receive Date: 20041102
  Receipt Date: 20041020
  Transmission Date: 20050328
  Serious: Yes (Life-Threatening, Hospitalization)
  Sender: FDA-Public Use
  Company Number: EWC041041107

PATIENT
  Age: 70 Year
  Sex: Female
  Weight: 65 kg

DRUGS (7)
  1. PERGOLIDE MESYLATE [Suspect]
     Indication: PARKINSON'S DISEASE
     Dosage: 3 MG DAY
     Dates: start: 20020101, end: 20041004
  2. SINEMET [Concomitant]
  3. EMCONCOR (BISOPROLOL) [Concomitant]
  4. CITALOPRAM HYDROBROMIDE [Concomitant]
  5. FOSAMAX [Concomitant]
  6. VITAMIN B COMPLEX CAP [Concomitant]
  7. COMTAN [Concomitant]

REACTIONS (3)
  - HYDRONEPHROSIS [None]
  - RENAL FAILURE [None]
  - RETROPERITONEAL FIBROSIS [None]
